FAERS Safety Report 14756851 (Version 1)
Quarter: 2018Q2

REPORT INFORMATION
  Report Type: Spontaneous
  Country: US (occurrence: US)
  Receive Date: 20180413
  Receipt Date: 20180413
  Transmission Date: 20180711
  Serious: Yes (Other)
  Sender: FDA-Public Use
  Company Number: US-LPDUSPRD-20180607

PATIENT
  Sex: Female

DRUGS (1)
  1. BUSULFAN INJECTION (0517-0920-01) [Suspect]
     Active Substance: BUSULFAN
     Dosage: HIGH-DOSE, UNKNOWN
     Route: 065

REACTIONS (2)
  - Ovarian failure [Unknown]
  - Off label use [Unknown]
